FAERS Safety Report 17185003 (Version 1)
Quarter: 2019Q4

REPORT INFORMATION
  Report Type: Spontaneous
  Country: US (occurrence: US)
  Receive Date: 20191219
  Receipt Date: 20191219
  Transmission Date: 20200122
  Serious: Yes (Other)
  Sender: FDA-Public Use
  Company Number: None

PATIENT
  Age: 32 Year
  Sex: Female
  Weight: 64.35 kg

DRUGS (3)
  1. PRENATAL PILLS [Concomitant]
  2. ZINC. [Concomitant]
     Active Substance: ZINC
  3. CLINDAMYCIN PHOSPHATE TOPICAL GEL 1% [Suspect]
     Active Substance: CLINDAMYCIN PHOSPHATE
     Indication: ACNE
     Route: 061
     Dates: start: 20191210, end: 20191217

REACTIONS (1)
  - Swollen tongue [None]

NARRATIVE: CASE EVENT DATE: 20191216
